FAERS Safety Report 6220039-3 (Version None)
Quarter: 2009Q2

REPORT INFORMATION
  Report Type: 
  Country: None (occurrence: None)
  Receive Date: 20090609
  Receipt Date: 20090529
  Transmission Date: 20091009
  Serious: Yes (Other)
  Sender: FDA-Public Use
  Company Number: PHHY2009JP19719

PATIENT
  Age: 66 Year
  Sex: Male

DRUGS (10)
  1. CYCLOSPORINE [Suspect]
     Indication: APLASTIC ANAEMIA
     Dosage: UNK
     Route: 065
     Dates: end: 20080101
  2. CYCLOSPORINE [Suspect]
     Dosage: UNK
  3. ANTILYMPHOCYTE IMMUNOGLOBULIN (HORSE) [Suspect]
     Indication: APLASTIC ANAEMIA
     Dosage: UNK
  4. NEUPOGEN [Concomitant]
     Indication: APLASTIC ANAEMIA
  5. RABBIT ATG [Concomitant]
     Indication: APLASTIC ANAEMIA
  6. FLUDARABINE PHOSPHATE [Concomitant]
     Indication: STEM CELL TRANSPLANT
  7. L-PAM [Concomitant]
     Indication: STEM CELL TRANSPLANT
  8. IRRADIATION [Concomitant]
     Indication: STEM CELL TRANSPLANT
  9. ANTIBIOTICS [Concomitant]
  10. FK 506 [Concomitant]
     Indication: PROPHYLAXIS AGAINST GRAFT VERSUS HOST DISEASE

REACTIONS (7)
  - APLASTIC ANAEMIA [None]
  - BRONCHOPULMONARY ASPERGILLOSIS [None]
  - PERIODONTITIS [None]
  - RENAL IMPAIRMENT [None]
  - STAPHYLOCOCCAL SEPSIS [None]
  - STEM CELL TRANSPLANT [None]
  - THYMOMA [None]
